FAERS Safety Report 25669709 (Version 1)
Quarter: 2025Q3

REPORT INFORMATION
  Report Type: Spontaneous
  Country: US (occurrence: None)
  Receive Date: 20250810
  Receipt Date: 20250810
  Transmission Date: 20251021
  Serious: Yes (Life-Threatening, Hospitalization, Disabling)
  Sender: FDA-CTU
  Company Number: None

PATIENT
  Age: 14 Month
  Sex: Female
  Weight: 41 kg

DRUGS (1)
  1. QUETIAPINE [Suspect]
     Active Substance: QUETIAPINE
     Indication: Behavioural therapy
     Dosage: FREQUENCY : AT BEDTIME;?OTHER ROUTE : TAKEN BY MOUTH;?
     Route: 048

REACTIONS (9)
  - Hypersomnia [None]
  - Decreased appetite [None]
  - Confusional state [None]
  - Restlessness [None]
  - Suicidal ideation [None]
  - Flat affect [None]
  - Fatigue [None]
  - Psychotic disorder [None]
  - Cognitive disorder [None]

NARRATIVE: CASE EVENT DATE: 20221007
